FAERS Safety Report 17956177 (Version 1)
Quarter: 2020Q2

REPORT INFORMATION
  Report Type: Spontaneous
  Country: CA (occurrence: CA)
  Receive Date: 20200629
  Receipt Date: 20200629
  Transmission Date: 20200714
  Serious: Yes (Death, Hospitalization)
  Sender: FDA-Public Use
  Company Number: CA-UCBSA-2020024359

PATIENT
  Age: 84 Year
  Sex: Female
  Weight: 78.46 kg

DRUGS (20)
  1. LEVETIRACETAM. [Suspect]
     Active Substance: LEVETIRACETAM
     Indication: SEIZURE
     Dosage: 500 MILLIGRAM, 2X/DAY (BID)
     Route: 048
  2. ANUSOL [BISMUTH OXIDE;BISMUTH SUBGALLATE;ZINC OXIDE] [Concomitant]
     Indication: PRODUCT USED FOR UNKNOWN INDICATION
  3. IRBESARTAN. [Concomitant]
     Active Substance: IRBESARTAN
     Indication: PRODUCT USED FOR UNKNOWN INDICATION
  4. DIPHENHYDRAMINE. [Concomitant]
     Active Substance: DIPHENHYDRAMINE
     Indication: PRODUCT USED FOR UNKNOWN INDICATION
  5. FERROUS GLUCONATE [Concomitant]
     Active Substance: FERROUS GLUCONATE
     Indication: PRODUCT USED FOR UNKNOWN INDICATION
  6. CLOTRIMAZOLE;HYDROCORTISONE [Concomitant]
     Active Substance: CLOTRIMAZOLE\HYDROCORTISONE
     Indication: PRODUCT USED FOR UNKNOWN INDICATION
  7. AMLODIPINE [Concomitant]
     Active Substance: AMLODIPINE BESYLATE
     Indication: PRODUCT USED FOR UNKNOWN INDICATION
  8. SALVENT [SALBUTAMOL] [Concomitant]
     Indication: PRODUCT USED FOR UNKNOWN INDICATION
  9. CITALOPRAM [Concomitant]
     Active Substance: CITALOPRAM HYDROBROMIDE
     Indication: PRODUCT USED FOR UNKNOWN INDICATION
  10. FUROSEMIDE. [Concomitant]
     Active Substance: FUROSEMIDE
     Indication: PRODUCT USED FOR UNKNOWN INDICATION
  11. STATEX [SIMVASTATIN] [Concomitant]
     Indication: PRODUCT USED FOR UNKNOWN INDICATION
  12. ACETAMINOPHEN. [Concomitant]
     Active Substance: ACETAMINOPHEN
     Indication: PRODUCT USED FOR UNKNOWN INDICATION
  13. VOLTAREN [DICLOFENAC] [Concomitant]
     Active Substance: DICLOFENAC SODIUM
     Indication: PRODUCT USED FOR UNKNOWN INDICATION
  14. ECTOSONE [Concomitant]
     Indication: PRODUCT USED FOR UNKNOWN INDICATION
  15. SENNA TABS [Concomitant]
     Active Substance: SENNOSIDES A AND B
     Indication: PRODUCT USED FOR UNKNOWN INDICATION
  16. SPIRIVA RESPIMAT [Concomitant]
     Active Substance: TIOTROPIUM BROMIDE
     Indication: PRODUCT USED FOR UNKNOWN INDICATION
  17. PMS LACTULOSE [Concomitant]
     Indication: PRODUCT USED FOR UNKNOWN INDICATION
  18. VITAMIN D [ERGOCALCIFEROL] [Concomitant]
     Active Substance: ERGOCALCIFEROL
     Indication: PRODUCT USED FOR UNKNOWN INDICATION
  19. ASATAB [Concomitant]
     Indication: PRODUCT USED FOR UNKNOWN INDICATION
  20. SOY PROTEIN [Concomitant]
     Active Substance: SOY PROTEIN
     Indication: PRODUCT USED FOR UNKNOWN INDICATION

REACTIONS (6)
  - Blister rupture [Fatal]
  - Cerebrovascular accident [Fatal]
  - Pain [Fatal]
  - Skin erosion [Fatal]
  - Wound infection [Fatal]
  - Blister [Fatal]
